FAERS Safety Report 15010307 (Version 1)
Quarter: 2018Q2

REPORT INFORMATION
  Report Type: Spontaneous
  Country: US (occurrence: US)
  Receive Date: 20180521
  Receipt Date: 20180521
  Transmission Date: 20180711
  Serious: Yes (Hospitalization)
  Sender: FDA-Public Use
  Company Number: None

PATIENT
  Age: 36 Year
  Sex: Female

DRUGS (13)
  1. METHYLPREDNISOLONE. [Concomitant]
     Active Substance: METHYLPREDNISOLONE
  2. HYDRALAZINE [Concomitant]
     Active Substance: HYDRALAZINE HYDROCHLORIDE
  3. LEVOFLOXACIN. [Concomitant]
     Active Substance: LEVOFLOXACIN
  4. FAMOTIDINE. [Concomitant]
     Active Substance: FAMOTIDINE
  5. NICARDIPINE [Concomitant]
     Active Substance: NICARDIPINE
  6. LINEZOLID. [Suspect]
     Active Substance: LINEZOLID
     Indication: WOUND INFECTION
     Route: 048
     Dates: start: 20180206, end: 20180206
  7. METOPROLOL TARTRATE. [Concomitant]
     Active Substance: METOPROLOL TARTRATE
  8. METRONIDAZOLE. [Concomitant]
     Active Substance: METRONIDAZOLE
  9. TACROLIMUS. [Concomitant]
     Active Substance: TACROLIMUS
  10. HEPARIN [Concomitant]
     Active Substance: HEPARIN SODIUM
  11. PROPOFOL. [Concomitant]
     Active Substance: PROPOFOL
  12. CASPOFUNGIN [Concomitant]
     Active Substance: CASPOFUNGIN
  13. FENTANYL. [Concomitant]
     Active Substance: FENTANYL

REACTIONS (3)
  - Abdominal infection [None]
  - Sepsis [None]
  - Lactic acidosis [None]

NARRATIVE: CASE EVENT DATE: 20180206
